FAERS Safety Report 4377998-3 (Version None)
Quarter: 2004Q2

REPORT INFORMATION
  Report Type: 
  Country: None (occurrence: None)
  Receive Date: 20040616
  Receipt Date: 20040608
  Transmission Date: 20050107
  Serious: Yes (Life-Threatening, Hospitalization)
  Sender: FDA-Public Use
  Company Number: FR-BRISTOL-MYERS SQUIBB COMPANY-12609020

PATIENT
  Age: 82 Year
  Sex: Female
  Weight: 62 kg

DRUGS (6)
  1. TAXOL [Suspect]
     Indication: BREAST CANCER METASTATIC
     Dosage: OVER 1 HOUR
     Route: 042
     Dates: start: 20040415, end: 20040415
  2. CARBOPLATINE [Concomitant]
     Indication: BREAST CANCER METASTATIC
  3. POLARAMINE [Concomitant]
     Indication: PREMEDICATION
  4. TAGAMET [Concomitant]
     Indication: PREMEDICATION
  5. ZOPHREN [Concomitant]
     Indication: PREMEDICATION
  6. METHYLPREDNISOLONE [Concomitant]
     Indication: PREMEDICATION

REACTIONS (4)
  - HYPOXIA [None]
  - LOSS OF CONSCIOUSNESS [None]
  - OXYGEN SATURATION DECREASED [None]
  - RESPIRATORY FAILURE [None]
